FAERS Safety Report 17439872 (Version 1)
Quarter: 2020Q1

REPORT INFORMATION
  Report Type: Report from Study
  Country: US (occurrence: US)
  Receive Date: 20200220
  Receipt Date: 20200220
  Transmission Date: 20200409
  Serious: Yes (Other)
  Sender: FDA-Public Use
  Company Number: US-ROCHE-2549765

PATIENT
  Age: 36 Year
  Sex: Female
  Weight: 131.66 kg

DRUGS (4)
  1. OCREVUS [Suspect]
     Active Substance: OCRELIZUMAB
     Indication: RELAPSING-REMITTING MULTIPLE SCLEROSIS
     Dosage: ON 17/JUL/2019 AND 24/JUL/2019, SHE RECEIVED OCRELIZUMAB INFUSION
     Route: 042
     Dates: start: 20190710
  2. TAMIFLU [Suspect]
     Active Substance: OSELTAMIVIR PHOSPHATE
     Indication: INFLUENZA
     Route: 048
     Dates: start: 201910, end: 201910
  3. OCREVUS [Suspect]
     Active Substance: OCRELIZUMAB
     Route: 042
  4. TAMIFLU [Suspect]
     Active Substance: OSELTAMIVIR PHOSPHATE
     Route: 048
     Dates: start: 202001, end: 202001

REACTIONS (14)
  - Immunodeficiency [Not Recovered/Not Resolved]
  - Hyperhidrosis [Recovered/Resolved]
  - Swelling [Recovered/Resolved]
  - Blood pressure decreased [Recovered/Resolved]
  - Contusion [Recovered/Resolved]
  - Extravasation [Recovered/Resolved]
  - Eosinophil count decreased [Unknown]
  - Influenza [Recovered/Resolved]
  - Tachycardia [Recovered/Resolved]
  - Bronchitis [Recovered/Resolved]
  - Cough [Recovered/Resolved]
  - Fatigue [Not Recovered/Not Resolved]
  - Pain [Recovered/Resolved]
  - Neutrophil count decreased [Unknown]

NARRATIVE: CASE EVENT DATE: 201911
